FAERS Safety Report 7870669-8 (Version None)
Quarter: 2011Q3

REPORT INFORMATION
  Report Type: 
  Country: None (occurrence: None)
  Receive Date: 20110922
  Receipt Date: 20110527
  Transmission Date: 20111222
  Serious: Yes (Hospitalization, Disabling)
  Sender: FDA-Public Use
  Company Number: 20110427

PATIENT
  Age: 48 Year
  Sex: Male

DRUGS (7)
  1. PENTOXIFYLLINE CR [Concomitant]
  2. DEXAMETHASONE SODIUM PHOSPHATE [Suspect]
     Indication: BRAIN OEDEMA
     Dosage: INTRAVENOUS
     Route: 042
     Dates: start: 20080101, end: 20110401
  3. LAMICTAL [Concomitant]
  4. DEXAMETHASONE [Suspect]
     Indication: BRAIN OEDEMA
     Dosage: VARIABLE DOSING DAILY ORAL
     Route: 048
     Dates: start: 20080101, end: 20110401
  5. LISINOPRIL [Concomitant]
  6. VITAMIN TAB [Concomitant]
  7. METHADONE HCL [Concomitant]

REACTIONS (10)
  - INCREASED APPETITE [None]
  - FATIGUE [None]
  - ABNORMAL LOSS OF WEIGHT [None]
  - MYALGIA [None]
  - MOOD SWINGS [None]
  - ABDOMINAL DISTENSION [None]
  - GENERALISED OEDEMA [None]
  - WEIGHT INCREASED [None]
  - ARTHRALGIA [None]
  - WEIGHT DECREASED [None]
